FAERS Safety Report 18996837 (Version 1)
Quarter: 2021Q1

REPORT INFORMATION
  Report Type: Spontaneous
  Country: US (occurrence: US)
  Receive Date: 20210311
  Receipt Date: 20210311
  Transmission Date: 20210420
  Serious: No
  Sender: FDA-Public Use
  Company Number: US-HIKMA PHARMACEUTICALS USA INC.-US-H14001-20-04751

PATIENT
  Sex: Female

DRUGS (1)
  1. FLUTICASONE PROPIONAT [Suspect]
     Active Substance: FLUTICASONE PROPIONATE
     Indication: MULTIPLE ALLERGIES
     Route: 045
     Dates: start: 20201008

REACTIONS (2)
  - Product dose omission issue [Recovered/Resolved]
  - Product use in unapproved indication [Not Recovered/Not Resolved]
